FAERS Safety Report 5050728-8 (Version None)
Quarter: 2006Q3

REPORT INFORMATION
  Report Type: 
  Country: None (occurrence: None)
  Receive Date: 20060713
  Receipt Date: 20060703
  Transmission Date: 20061208
  Serious: Yes (Hospitalization)
  Sender: FDA-Public Use
  Company Number: FR-BRISTOL-MYERS SQUIBB COMPANY-13435862

PATIENT
  Age: 93 Year
  Sex: Female

DRUGS (6)
  1. CAPTEA TABS [Suspect]
     Indication: ESSENTIAL HYPERTENSION
     Route: 048
     Dates: start: 20060522, end: 20060526
  2. LAMALINE [Concomitant]
     Route: 048
  3. ACTONEL [Concomitant]
     Route: 048
  4. CACIT D3 [Concomitant]
     Route: 048
  5. OXYBUTYNIN [Concomitant]
     Indication: URINARY INCONTINENCE
     Route: 048
  6. KALEORID [Concomitant]
     Route: 048

REACTIONS (5)
  - DYSARTHRIA [None]
  - HYPOTENSION [None]
  - INCORRECT DOSE ADMINISTERED [None]
  - MEDICATION ERROR [None]
  - TRANSIENT ISCHAEMIC ATTACK [None]
